FAERS Safety Report 6128572-X (Version None)
Quarter: 2009Q1

REPORT INFORMATION
  Report Type: 
  Country: None (occurrence: None)
  Receive Date: 20090323
  Receipt Date: 20090319
  Transmission Date: 20090719
  Serious: Yes (Hospitalization)
  Sender: FDA-Public Use
  Company Number: US-B.I. PHARMACEUTICALS,INC./RIDGEFIELD-2009-BP-03415BP

PATIENT
  Age: 53 Year
  Sex: Female

DRUGS (13)
  1. COMBIVENT [Suspect]
     Indication: CHRONIC OBSTRUCTIVE PULMONARY DISEASE
     Route: 055
     Dates: start: 20080101, end: 20090226
  2. XOLAIR [Concomitant]
     Indication: MULTIPLE ALLERGIES
  3. ALBUTEROL [Concomitant]
     Indication: ASTHMA
     Route: 055
  4. ALBUTEROL [Concomitant]
     Indication: CHRONIC OBSTRUCTIVE PULMONARY DISEASE
  5. SINGULAIR [Concomitant]
     Indication: MULTIPLE ALLERGIES
  6. SINGULAIR [Concomitant]
     Indication: ASTHMA
  7. ZYRTEC [Concomitant]
     Indication: MULTIPLE ALLERGIES
  8. ASPIRIN [Concomitant]
     Indication: CARDIAC DISORDER
     Dosage: 81MG
  9. PREVACID [Concomitant]
     Indication: ABDOMINAL DISCOMFORT
  10. LASIX [Concomitant]
     Indication: SWELLING
     Dosage: 80MG
  11. BENICAR [Concomitant]
     Indication: HYPERTENSION
     Dosage: 20MG
  12. CORTEF [Concomitant]
     Indication: ADDISON'S DISEASE
  13. CARVEDILOL [Concomitant]
     Indication: CARDIAC FAILURE CONGESTIVE

REACTIONS (3)
  - CHOKING [None]
  - DYSPNOEA [None]
  - TRISMUS [None]
